FAERS Safety Report 25628926 (Version 4)
Quarter: 2025Q3

REPORT INFORMATION
  Report Type: Spontaneous
  Country: US (occurrence: US)
  Receive Date: 20250731
  Receipt Date: 20250910
  Transmission Date: 20251021
  Serious: Yes (Hospitalization)
  Sender: PFIZER
  Company Number: US-PFIZER INC-202500153164

PATIENT
  Age: 79 Year
  Sex: Female
  Weight: 70.295 kg

DRUGS (1)
  1. IBRANCE [Suspect]
     Active Substance: PALBOCICLIB
     Indication: Breast cancer female
     Route: 048
     Dates: start: 20220114

REACTIONS (1)
  - Occipital lobe stroke [Unknown]

NARRATIVE: CASE EVENT DATE: 20250716
